FAERS Safety Report 21952149 (Version 1)
Quarter: 2023Q1

REPORT INFORMATION
  Report Type: Spontaneous
  Country: JP (occurrence: JP)
  Receive Date: 20230203
  Receipt Date: 20230203
  Transmission Date: 20230418
  Serious: Yes (Hospitalization, Other)
  Sender: FDA-Public Use
  Company Number: JP-BRISTOL-MYERS SQUIBB COMPANY-2023-015828

PATIENT
  Age: 65 Year
  Sex: Male

DRUGS (2)
  1. POMALYST [Suspect]
     Active Substance: POMALIDOMIDE
     Indication: Plasma cell myeloma
     Route: 048
     Dates: start: 2021, end: 20230116
  2. DECADRON [Suspect]
     Active Substance: DEXAMETHASONE
     Indication: Plasma cell myeloma
     Route: 048
     Dates: start: 2021, end: 20230116

REACTIONS (2)
  - Cryptococcosis [Recovered/Resolved]
  - Meningitis [Recovered/Resolved]

NARRATIVE: CASE EVENT DATE: 20230116
